FAERS Safety Report 25572040 (Version 1)
Quarter: 2025Q3

REPORT INFORMATION
  Report Type: Spontaneous
  Country: US (occurrence: US)
  Receive Date: 20250717
  Receipt Date: 20250717
  Transmission Date: 20251021
  Serious: Yes (Other)
  Sender: PFIZER
  Company Number: US-PFIZER INC-202500143785

PATIENT
  Age: 47 Year
  Sex: Female

DRUGS (3)
  1. LITFULO [Suspect]
     Active Substance: RITLECITINIB TOSYLATE
  2. DIGESTIVE ENZYME [AMYLASE;LIPASE;PROTEASE NOS] [Concomitant]
     Indication: Metabolic surgery
  3. PRENATAL WITH FOLIC ACID [ASCORBIC ACID;CALCIUM;ERGOCALCIFEROL;FOLIC A [Concomitant]
     Indication: Metabolic surgery

REACTIONS (1)
  - Cholecystectomy [Unknown]
